FAERS Safety Report 9671420 (Version 1)
Quarter: 2013Q4

REPORT INFORMATION
  Report Type: Spontaneous
  Country: US (occurrence: US)
  Receive Date: 20131106
  Receipt Date: 20131106
  Transmission Date: 20140711
  Serious: Yes (Disabling)
  Sender: FDA-Public Use
  Company Number: US-PFIZER INC-2013314144

PATIENT
  Age: 61 Year
  Sex: Female
  Weight: 50.34 kg

DRUGS (13)
  1. GEODON [Suspect]
     Dosage: 60 MG, 2X/DAY
     Route: 048
     Dates: start: 2013
  2. TEGRETOL [Concomitant]
     Indication: MENTAL DISORDER
     Dosage: UNK, 2X/DAY
  3. AMPHETAM ASP/AMPHETAM SULF/DEXTROAMPHET SACC/DEXTROAMPHET SULF/ [Concomitant]
     Indication: MENTAL DISORDER
     Dosage: 20MG THREE TIMES A DAY PLUS 10MG IN A DAY
     Route: 048
  4. TRANXENE [Concomitant]
     Indication: MENTAL DISORDER
     Dosage: 50 MG, 3X/DAY
     Route: 048
  5. ZOLOFT [Concomitant]
     Indication: MENTAL DISORDER
     Dosage: 75 MG (BY TAKING ONE AND A HALF TABLET OF 50 MG), UNK
     Route: 048
  6. AMBIEN [Concomitant]
     Indication: MENTAL DISORDER
     Dosage: 10 MG, 1X/DAY
  7. XANAX [Concomitant]
     Dosage: 1 MG, 2X/DAY
  8. PRILOSEC [Concomitant]
     Dosage: 40 MG, 1X/DAY
  9. CLONIDINE [Concomitant]
     Dosage: 0.1 MG, 1X/DAY
     Route: 048
  10. BONIVA [Concomitant]
     Dosage: 150 MG, MONTHLY
  11. LISINOPRIL W/HYDROCHLOROTHIAZIDE [Concomitant]
     Dosage: 20/125 MG, 1X/DAY
     Route: 048
  12. METFORMIN [Concomitant]
     Dosage: 500 MG, 2X/DAY
     Route: 048
  13. PREMARIN VAGINAL CREAM [Concomitant]
     Dosage: 0.625 MG, THREE TO FOUR TIMES A WEEK
     Route: 067

REACTIONS (1)
  - Psychiatric symptom [Not Recovered/Not Resolved]
